FAERS Safety Report 5620745-5 (Version None)
Quarter: 2008Q1

REPORT INFORMATION
  Report Type: 
  Country: None (occurrence: None)
  Receive Date: 20080208
  Receipt Date: 20080125
  Transmission Date: 20080703
  Serious: Yes (Other)
  Sender: FDA-Public Use
  Company Number: AU-PFIZER INC-2008011670

PATIENT
  Sex: Male

DRUGS (2)
  1. XANAX [Suspect]
     Indication: PANIC ATTACK
  2. ARATAC [Suspect]

REACTIONS (3)
  - CATARACT [None]
  - DRY EYE [None]
  - VISUAL DISTURBANCE [None]
